FAERS Safety Report 16156995 (Version 1)
Quarter: 2019Q2

REPORT INFORMATION
  Report Type: Spontaneous
  Country: US (occurrence: US)
  Receive Date: 20190403
  Receipt Date: 20190403
  Transmission Date: 20190711
  Serious: Yes (Other)
  Sender: FDA-Public Use
  Company Number: None

PATIENT
  Age: 41 Year
  Sex: Female
  Weight: 59.85 kg

DRUGS (3)
  1. FLONASE [Concomitant]
     Active Substance: FLUTICASONE PROPIONATE
  2. ADVIL [Concomitant]
     Active Substance: IBUPROFEN
  3. ACTAVIS CLONAZEPAM [Suspect]
     Active Substance: CLONAZEPAM
     Indication: ANXIETY
     Dosage: ?          QUANTITY:20 TABLET(S);?
     Route: 048

REACTIONS (6)
  - Drug ineffective [None]
  - Feeling jittery [None]
  - Product substitution issue [None]
  - Pollakiuria [None]
  - Insomnia [None]
  - Nervousness [None]

NARRATIVE: CASE EVENT DATE: 20190212
